FAERS Safety Report 11224612 (Version 1)
Quarter: 2015Q2

REPORT INFORMATION
  Report Type: Spontaneous
  Country: NL (occurrence: NL)
  Receive Date: 20150629
  Receipt Date: 20150629
  Transmission Date: 20150821
  Serious: Yes (Other)
  Sender: FDA-Public Use
  Company Number: NL-AUROBINDO-AUR-APL-2015-05529

PATIENT
  Age: 37 Year
  Sex: Female

DRUGS (1)
  1. FLUCONAZOLE 150MG [Suspect]
     Active Substance: FLUCONAZOLE
     Indication: VULVOVAGINAL CANDIDIASIS
     Dosage: 150 MG, ONCE A DAY
     Route: 065

REACTIONS (2)
  - Dermatitis bullous [Not Recovered/Not Resolved]
  - Drug eruption [Not Recovered/Not Resolved]
